FAERS Safety Report 14630356 (Version 1)
Quarter: 2018Q1

REPORT INFORMATION
  Report Type: Spontaneous
  Country: US (occurrence: US)
  Receive Date: 20180313
  Receipt Date: 20180313
  Transmission Date: 20180509
  Serious: Yes (Other)
  Sender: FDA-Public Use
  Company Number: None

PATIENT
  Age: 68 Year
  Sex: Female
  Weight: 87.3 kg

DRUGS (5)
  1. DOCUSATE SODIUM. [Concomitant]
     Active Substance: DOCUSATE SODIUM
  2. ASPIRIN. [Concomitant]
     Active Substance: ASPIRIN
  3. TIZANIDINE HCL [Concomitant]
     Active Substance: TIZANIDINE HYDROCHLORIDE
  4. GAMMAGARD [Suspect]
     Active Substance: HUMAN IMMUNOGLOBULIN G
     Indication: CHRONIC INFLAMMATORY DEMYELINATING POLYRADICULONEUROPATHY
     Route: 042
     Dates: start: 20180129, end: 20180131
  5. QUETIAPINE FUMARATE. [Concomitant]
     Active Substance: QUETIAPINE FUMARATE

REACTIONS (2)
  - Cellulitis [None]
  - Administration site thrombosis [None]

NARRATIVE: CASE EVENT DATE: 20180201
